FAERS Safety Report 19750809 (Version 2)
Quarter: 2021Q3

REPORT INFORMATION
  Report Type: Report from Study
  Country: None (occurrence: IT)
  Receive Date: 20210826
  Receipt Date: 20210907
  Transmission Date: 20211014
  Serious: Yes (Death, Hospitalization)
  Sender: FDA-Public Use
  Company Number: IT-ABBVIE-21K-083-4053853-00

PATIENT
  Age: 77 Year
  Sex: Female

DRUGS (2)
  1. DUODOPA [Suspect]
     Active Substance: CARBIDOPA\LEVODOPA
     Indication: PARKINSON^S DISEASE
     Dosage: TOTAL DAILY DOSE (MG): 2196; PUMP SETTING: MD: 3+3; CR: 4,2 (24H); ED: 3
     Route: 050
     Dates: start: 20150407, end: 20210903
  2. DUODOPA [Suspect]
     Active Substance: CARBIDOPA\LEVODOPA

REACTIONS (3)
  - Decubitus ulcer [Unknown]
  - General physical health deterioration [Fatal]
  - Cachexia [Unknown]

NARRATIVE: CASE EVENT DATE: 202108
